FAERS Safety Report 10193122 (Version 1)
Quarter: 2014Q2

REPORT INFORMATION
  Report Type: Spontaneous
  Country: US (occurrence: US)
  Receive Date: 20140524
  Receipt Date: 20140524
  Transmission Date: 20141212
  Serious: No
  Sender: FDA-Public Use
  Company Number: US-SA-2013SA108420

PATIENT
  Age: 67 Year
  Sex: Male

DRUGS (5)
  1. LANTUS SOLOSTAR [Suspect]
     Indication: TYPE 2 DIABETES MELLITUS
     Dosage: STARTED FROM 5 DAYS AGO DOSE:20 UNIT(S)
     Route: 051
     Dates: start: 201310
  2. METFORMIN [Concomitant]
  3. GLIPIZIDE [Concomitant]
  4. BETA BLOCKING AGENTS [Concomitant]
  5. SOLOSTAR [Concomitant]
     Indication: TYPE 2 DIABETES MELLITUS
     Dates: start: 201310

REACTIONS (8)
  - Dysgeusia [Unknown]
  - Euphoric mood [Unknown]
  - Insomnia [Unknown]
  - Headache [Unknown]
  - Heart rate increased [Unknown]
  - Blood pressure increased [Unknown]
  - Sinus congestion [Unknown]
  - Blood glucose increased [Unknown]
